FAERS Safety Report 19631453 (Version 2)
Quarter: 2021Q3

REPORT INFORMATION
  Report Type: Report from Study
  Country: DE (occurrence: DE)
  Receive Date: 20210728
  Receipt Date: 20210804
  Transmission Date: 20211014
  Serious: Yes (Hospitalization)
  Sender: FDA-Public Use
  Company Number: DE-ROCHE-2873048

PATIENT
  Age: 68 Year
  Sex: Male
  Weight: 66 kg

DRUGS (11)
  1. HUMALOG [Concomitant]
     Active Substance: INSULIN LISPRO
     Indication: TYPE 2 DIABETES MELLITUS
     Dates: start: 2020
  2. COTRIM [Concomitant]
     Active Substance: SULFAMETHOXAZOLE\TRIMETHOPRIM
     Indication: INFECTION PROPHYLAXIS
     Dates: start: 20210312
  3. ACICLOVIR [Concomitant]
     Active Substance: ACYCLOVIR
     Indication: INFECTION PROPHYLAXIS
     Dates: start: 20210311
  4. COPANLISIB. [Suspect]
     Active Substance: COPANLISIB
     Indication: FOLLICULAR LYMPHOMA
     Dosage: DATE OF MOST RECENT DOSE OF COPANLISIB PRIOR TO AE ONSET: 08/JUL/2021.?POWDER AND SOLVENT FOR SOLUTI
     Route: 041
     Dates: start: 20210311, end: 20210708
  5. PANTOPRAZOLE [Concomitant]
     Active Substance: PANTOPRAZOLE
     Dates: start: 20210715, end: 20210719
  6. OBINUTUZUMAB. [Suspect]
     Active Substance: OBINUTUZUMAB
     Indication: FOLLICULAR LYMPHOMA
     Dosage: DATE OF MOST RECENT DOSE OF OBINUTUZUMAB PRIOR TO AE ONSET: 01/JUL/2021.?POWDER FOR SOLUTION FOR INF
     Route: 041
     Dates: start: 20210311, end: 20210701
  7. ASPIRIN. [Concomitant]
     Active Substance: ASPIRIN
     Indication: PROPHYLAXIS
     Dates: start: 2020
  8. ATORVASTATIN [Concomitant]
     Active Substance: ATORVASTATIN
     Indication: HYPERTENSION
     Dates: start: 2020
  9. FENISTIL [Concomitant]
     Active Substance: DIMETHINDENE
     Indication: PRURITUS
     Dates: start: 20210415
  10. PANTOPRAZOLE [Concomitant]
     Active Substance: PANTOPRAZOLE
     Route: 048
     Dates: start: 20210720
  11. LANTUS [Concomitant]
     Active Substance: INSULIN GLARGINE
     Indication: TYPE 2 DIABETES MELLITUS
     Dates: start: 2020

REACTIONS (1)
  - Gastrointestinal haemorrhage [Recovering/Resolving]

NARRATIVE: CASE EVENT DATE: 20210714
